FAERS Safety Report 8724814 (Version 2)
Quarter: 2012Q4

REPORT INFORMATION
  Report Type: 
  Country: US (occurrence: US)
  Receive Date: 20120815
  Receipt Date: 20121127
  Transmission Date: 20130627
  Serious: Yes (Hospitalization, Other)
  Sender: FDA-Public Use
  Company Number: US-GILEAD-2012-0059688

PATIENT
  Age: 63 Year
  Sex: Male

DRUGS (11)
  1. LETAIRIS [Suspect]
     Indication: PULMONARY ARTERIAL HYPERTENSION
     Dosage: 5 mg, UNK
     Route: 048
     Dates: start: 20120806, end: 20120807
  2. REVATIO [Concomitant]
  3. TYVASO [Concomitant]
  4. BUMEX [Concomitant]
  5. CITALOPRAM [Concomitant]
  6. DILTIAZEM [Concomitant]
  7. HYDRALAZINE [Concomitant]
  8. ASMAREX [Concomitant]
  9. OXYGEN [Concomitant]
  10. PANTOPRAZOLE [Concomitant]
  11. KCL [Concomitant]

REACTIONS (7)
  - Cardiac arrest [Unknown]
  - Hypoxia [Recovered/Resolved]
  - Dyspnoea [Recovered/Resolved]
  - Headache [Recovered/Resolved]
  - Fluid retention [Recovered/Resolved]
  - Abdominal distension [Recovered/Resolved]
  - Weight increased [Recovered/Resolved]
